FAERS Safety Report 19655632 (Version 1)
Quarter: 2021Q3

REPORT INFORMATION
  Report Type: Spontaneous
  Country: US (occurrence: US)
  Receive Date: 20210803
  Receipt Date: 20210803
  Transmission Date: 20211014
  Serious: Yes (Disabling)
  Sender: FDA-Public Use
  Company Number: None

PATIENT
  Age: 12 Year
  Sex: Female
  Weight: 52.65 kg

DRUGS (3)
  1. NEXPLANON [Suspect]
     Active Substance: ETONOGESTREL
     Indication: CONTRACEPTION
     Dosage: ?          QUANTITY:1 N/A;OTHER FREQUENCY:N/A;?
     Route: 058
  2. PROGESTERONE. [Concomitant]
     Active Substance: PROGESTERONE
  3. METFORMIN [Concomitant]
     Active Substance: METFORMIN HYDROCHLORIDE

REACTIONS (3)
  - Complication of pregnancy [None]
  - Polycystic ovaries [None]
  - Vaginal haemorrhage [None]

NARRATIVE: CASE EVENT DATE: 20170324
